FAERS Safety Report 9429356 (Version 1)
Quarter: 2013Q3

REPORT INFORMATION
  Report Type: Spontaneous
  Country: US (occurrence: US)
  Receive Date: 20130730
  Receipt Date: 20130730
  Transmission Date: 20140515
  Serious: No
  Sender: FDA-Public Use
  Company Number: US-ABBOTT-13P-163-1055994-00

PATIENT
  Age: 73 Year
  Sex: Female
  Weight: 89.44 kg

DRUGS (13)
  1. NIASPAN (COATED) [Suspect]
     Indication: HIGH DENSITY LIPOPROTEIN DECREASED
     Dosage: AT BEDTIME
     Dates: start: 20130212, end: 20130218
  2. SOTALOL [Concomitant]
     Indication: ARRHYTHMIA
  3. ASPIRIN [Concomitant]
     Indication: PRODUCT USED FOR UNKNOWN INDICATION
  4. FISH OIL [Concomitant]
     Indication: PRODUCT USED FOR UNKNOWN INDICATION
  5. CALCIUM + VITAMIN D [Concomitant]
     Indication: VITAMIN SUPPLEMENTATION
  6. FOLIC ACID [Concomitant]
     Indication: PRODUCT USED FOR UNKNOWN INDICATION
  7. OMEPRAZOLE [Concomitant]
     Indication: GASTROOESOPHAGEAL REFLUX DISEASE
  8. LOSARTIN [Concomitant]
     Indication: HYPERTENSION
  9. ZETIA [Concomitant]
     Indication: BLOOD CHOLESTEROL INCREASED
  10. FENOFIBRATE [Concomitant]
     Indication: BLOOD CHOLESTEROL INCREASED
  11. METOPROLOL [Concomitant]
     Indication: MIGRAINE
  12. ZYRTEC [Concomitant]
     Indication: HYPERSENSITIVITY
  13. DAYPRO [Concomitant]
     Indication: ARTHRITIS

REACTIONS (11)
  - Lip swelling [Recovered/Resolved]
  - Pain in extremity [Recovering/Resolving]
  - Flushing [Recovered/Resolved]
  - Paraesthesia [Recovering/Resolving]
  - Dizziness [Recovered/Resolved]
  - Hyperhidrosis [Recovered/Resolved]
  - Joint swelling [Recovered/Resolved]
  - Swollen tongue [Not Recovered/Not Resolved]
  - Muscle spasms [Recovered/Resolved]
  - Dyspnoea [Recovered/Resolved]
  - Rash [Recovered/Resolved]
